FAERS Safety Report 8916201 (Version 1)
Quarter: 2012Q4

REPORT INFORMATION
  Report Type: 
  Country: FR (occurrence: FR)
  Receive Date: 20121120
  Receipt Date: 20121120
  Transmission Date: 20130627
  Serious: Yes (Hospitalization, Other)
  Sender: FDA-Public Use
  Company Number: FR-ELI_LILLY_AND_COMPANY-FR201211001627

PATIENT
  Age: 0 Year
  Sex: Female

DRUGS (18)
  1. ZYPREXA [Suspect]
     Dosage: 20 mg, qd
     Route: 064
     Dates: start: 20120725, end: 20120808
  2. ZYPREXA [Suspect]
     Dosage: 20 mg, qd
     Route: 064
     Dates: start: 20120725, end: 20120808
  3. LARGACTIL [Concomitant]
     Dosage: 650 mg, UNK
     Route: 064
     Dates: start: 201206, end: 20120725
  4. LARGACTIL [Concomitant]
     Dosage: 650 mg, UNK
     Route: 064
     Dates: start: 201206, end: 20120725
  5. LARGACTIL [Concomitant]
     Dosage: 200 mg, UNK
     Dates: start: 20120725, end: 20120808
  6. LARGACTIL [Concomitant]
     Dosage: 200 mg, UNK
     Dates: start: 20120725, end: 20120808
  7. THERALENE [Concomitant]
     Dosage: 50 mg, qd
     Route: 064
     Dates: start: 20120725, end: 20120808
  8. THERALENE [Concomitant]
     Dosage: 50 mg, qd
     Route: 064
     Dates: start: 20120725, end: 20120808
  9. SERESTA [Concomitant]
     Dosage: 30 mg, qd
     Route: 064
     Dates: start: 20120725, end: 20120808
  10. SERESTA [Concomitant]
     Dosage: 30 mg, qd
     Route: 064
     Dates: start: 20120725, end: 20120808
  11. LEPTICUR [Concomitant]
     Dosage: 650 mg, qd
     Route: 064
     Dates: start: 20120630, end: 20120725
  12. LEPTICUR [Concomitant]
     Dosage: 650 mg, qd
     Route: 064
     Dates: start: 20120630, end: 20120725
  13. RISPERDAL [Concomitant]
     Dosage: 12 mg, qd
     Route: 064
     Dates: start: 20120630, end: 20120725
  14. RISPERDAL [Concomitant]
     Dosage: 12 mg, qd
     Route: 064
     Dates: start: 20120630, end: 20120725
  15. LOXAPAC [Concomitant]
     Dosage: 600 mg, tid
     Route: 064
     Dates: start: 20120725, end: 20120808
  16. LOXAPAC [Concomitant]
     Dosage: 600 mg, tid
     Route: 064
     Dates: start: 20120725, end: 20120808
  17. LITHIUM [Concomitant]
     Dosage: UNK
     Route: 064
     Dates: start: 201208
  18. LITHIUM [Concomitant]
     Dosage: UNK
     Route: 064
     Dates: start: 201208

REACTIONS (10)
  - Neonatal respiratory distress syndrome [Recovered/Resolved]
  - Bradycardia neonatal [Unknown]
  - Hypotonia neonatal [Recovering/Resolving]
  - Sedation [Recovered/Resolved]
  - Somnolence neonatal [Unknown]
  - Feeding disorder neonatal [Recovering/Resolving]
  - Constipation [Recovering/Resolving]
  - Gastrointestinal disorder [Recovering/Resolving]
  - Premature baby [Unknown]
  - Foetal exposure during pregnancy [Recovering/Resolving]
